FAERS Safety Report 8790033 (Version 2)
Quarter: 2012Q4

REPORT INFORMATION
  Report Type: Report from Study
  Country: JP (occurrence: JP)
  Receive Date: 20120917
  Receipt Date: 20121227
  Transmission Date: 20130627
  Serious: Yes (Other)
  Sender: FDA-Public Use
  Company Number: JP-VERTEX PHARMACEUTICAL INC.-AE-2012-008932

PATIENT
  Age: 68 Year
  Sex: Female

DRUGS (8)
  1. VX-950 (TELAPREVIR) [Suspect]
     Indication: CHRONIC HEPATITIS C
     Dosage: 1500 mg, qd
     Route: 048
     Dates: start: 20120305, end: 20120423
  2. PEGINTERFERON ALFA-2B [Suspect]
     Indication: CHRONIC HEPATITIS C
     Dosage: 1.37 ?g/kg, qw
     Route: 058
     Dates: start: 20120305, end: 20120417
  3. PEGINTERFERON ALFA-2B [Suspect]
     Dosage: 1.03 ?g/kg, qw
     Route: 058
     Dates: start: 20120426, end: 20120626
  4. PEGINTERFERON ALFA-2B [Suspect]
     Dosage: 0.86 ?g/kg, qw
     Route: 058
     Dates: start: 20120703
  5. RIBAVIRIN [Suspect]
     Indication: CHRONIC HEPATITIS C
     Dosage: 400 mg, qd
     Route: 048
     Dates: start: 20120305
  6. EVAMYL [Concomitant]
     Dosage: 1 mg, prn
     Route: 048
     Dates: start: 20120305
  7. MUCOSTA [Concomitant]
     Dosage: 100 mg, prn
     Route: 048
     Dates: start: 20120305
  8. ZYLORIC [Concomitant]
     Dosage: 100 mg, qd
     Route: 048
     Dates: start: 20120307, end: 20120402

REACTIONS (1)
  - Rash [Recovered/Resolved]
